FAERS Safety Report 8524475-1 (Version None)
Quarter: 2012Q3

REPORT INFORMATION
  Report Type: 
  Country: None (occurrence: None)
  Receive Date: 20120720
  Receipt Date: 20120716
  Transmission Date: 20120928
  Serious: No
  Sender: FDA-Public Use
  Company Number: US-PFIZER INC-2012171545

PATIENT
  Sex: Female
  Weight: 61.224 kg

DRUGS (3)
  1. VFEND [Suspect]
     Indication: DYSPNOEA
     Dosage: 200 MG, 1X/DAY
     Route: 048
  2. PREDNISONE [Concomitant]
     Dosage: UNK
  3. THEOPHYLLINE [Concomitant]
     Dosage: 100 MG

REACTIONS (1)
  - HEART RATE INCREASED [None]
